FAERS Safety Report 14547751 (Version 1)
Quarter: 2018Q1

REPORT INFORMATION
  Report Type: Spontaneous
  Country: CN (occurrence: CN)
  Receive Date: 20180219
  Receipt Date: 20180219
  Transmission Date: 20180509
  Serious: Yes (Other)
  Sender: FDA-Public Use
  Company Number: CN-009507513-1802CHN008647

PATIENT
  Age: 42 Year
  Sex: Female

DRUGS (2)
  1. CISPLATIN. [Suspect]
     Active Substance: CISPLATIN
     Indication: MALIGNANT MELANOMA
  2. TEMOZOLOMIDE. [Suspect]
     Active Substance: TEMOZOLOMIDE
     Indication: MALIGNANT MELANOMA
     Route: 048

REACTIONS (3)
  - Malignant neoplasm progression [Recovering/Resolving]
  - Metastases to liver [Recovering/Resolving]
  - Drug ineffective [Unknown]
